FAERS Safety Report 5369824-0 (Version None)
Quarter: 2007Q2

REPORT INFORMATION
  Report Type: 
  Country: None (occurrence: None)
  Receive Date: 20070621
  Receipt Date: 20070606
  Transmission Date: 20071010
  Serious: Yes (Death)
  Sender: FDA-Public Use
  Company Number: S06-UKI-04874-01

PATIENT
  Age: 65 Year
  Sex: Male
  Weight: 86 kg

DRUGS (1)
  1. CITALOPRAM HYDROBROMIDE [Suspect]

REACTIONS (4)
  - BLOOD ALCOHOL INCREASED [None]
  - CHOKING [None]
  - FOREIGN BODY ASPIRATION [None]
  - FOREIGN BODY TRAUMA [None]
